FAERS Safety Report 22081224 (Version 2)
Quarter: 2023Q1

REPORT INFORMATION
  Report Type: Spontaneous
  Country: US (occurrence: US)
  Receive Date: 20230309
  Receipt Date: 20230313
  Transmission Date: 20230417
  Serious: No
  Sender: FDA-Public Use
  Company Number: US-ALVOGEN-2022088652

PATIENT
  Age: 67 Year
  Sex: Female

DRUGS (1)
  1. BUPRENORPHINE\NALOXONE [Suspect]
     Active Substance: BUPRENORPHINE\NALOXONE
     Indication: Pain
     Dosage: STRENGTH: 4 MG/1 MG
     Route: 060
     Dates: start: 20221103, end: 20221108

REACTIONS (15)
  - Feeling abnormal [Recovered/Resolved]
  - Tremor [Not Recovered/Not Resolved]
  - Vertigo [Recovered/Resolved]
  - Ocular discomfort [Recovered/Resolved]
  - Blood pressure abnormal [Recovered/Resolved]
  - Eye pain [Recovered/Resolved]
  - Asthenia [Recovered/Resolved]
  - Headache [Recovered/Resolved]
  - Pain [Not Recovered/Not Resolved]
  - Vomiting [Recovered/Resolved]
  - Nervousness [Recovered/Resolved]
  - Vision blurred [Recovered/Resolved]
  - Insomnia [Recovered/Resolved]
  - Wrong technique in product usage process [Unknown]
  - Off label use [Unknown]

NARRATIVE: CASE EVENT DATE: 20221103
